FAERS Safety Report 23293870 (Version 1)
Quarter: 2023Q4

REPORT INFORMATION
  Report Type: Spontaneous
  Country: CA (occurrence: CA)
  Receive Date: 20231213
  Receipt Date: 20231213
  Transmission Date: 20240110
  Serious: Yes (Life-Threatening, Other)
  Sender: FDA-Public Use
  Company Number: CA-SANOFI-01663961

PATIENT
  Age: 75 Year
  Sex: Female

DRUGS (3)
  1. ADMELOG [Suspect]
     Active Substance: INSULIN LISPRO
     Indication: Diabetes mellitus
     Dosage: UNK
     Route: 058
  2. ADMELOG [Suspect]
     Active Substance: INSULIN LISPRO
     Dosage: 10 MG, BID
     Route: 058
  3. ADMELOG [Suspect]
     Active Substance: INSULIN LISPRO
     Dosage: 10 MG, TID
     Route: 058

REACTIONS (4)
  - Hypertension [Recovered/Resolved]
  - Malaise [Recovered/Resolved]
  - Blood glucose increased [Recovered/Resolved]
  - Device defective [Unknown]
